FAERS Safety Report 9076768 (Version 1)
Quarter: 2013Q1

REPORT INFORMATION
  Report Type: Report from Study
  Country: US (occurrence: US)
  Receive Date: 20130129
  Receipt Date: 20130129
  Transmission Date: 20140127
  Serious: No
  Sender: FDA-Public Use
  Company Number: US-ABBOTT-12P-163-0949766-00

PATIENT
  Age: 57 Year
  Sex: Male

DRUGS (10)
  1. HUMIRA 40 MG/0.8 ML PEN [Suspect]
     Indication: PSORIATIC ARTHROPATHY
     Route: 058
     Dates: start: 201109
  2. OXYCONTIN [Concomitant]
     Indication: ARTHRALGIA
  3. OXYCODONE [Concomitant]
     Indication: ARTHRALGIA
  4. XANAX [Concomitant]
     Indication: ANXIETY
     Dosage: 1-2 TABS THREE TIMES DAILY
  5. OMEPRAZOLE [Concomitant]
     Indication: PRODUCT USED FOR UNKNOWN INDICATION
     Dosage: 40MG DAILY
  6. TRAZADONE [Concomitant]
     Indication: INSOMNIA
     Dosage: 1 TAB AT BEDTIME
  7. FOLIC ACID [Concomitant]
     Indication: PRODUCT USED FOR UNKNOWN INDICATION
     Dosage: 1MG DAILY
  8. SIMVASTATIN [Concomitant]
     Indication: BLOOD CHOLESTEROL INCREASED
     Dosage: 20MG DAILY
  9. PREDNISONE [Concomitant]
     Indication: PRODUCT USED FOR UNKNOWN INDICATION
     Dosage: 5MG DAILY
  10. BENICAR [Concomitant]
     Indication: HYPERTENSION
     Dosage: 1/2 TAB DAILY

REACTIONS (3)
  - Malaise [Not Recovered/Not Resolved]
  - Pain [None]
  - Musculoskeletal stiffness [Unknown]
